FAERS Safety Report 8539182-9 (Version None)
Quarter: 2012Q3

REPORT INFORMATION
  Report Type: 
  Country: None (occurrence: None)
  Receive Date: 20120726
  Receipt Date: 20120718
  Transmission Date: 20120928
  Serious: Yes (Death, Life-Threatening, Hospitalization)
  Sender: FDA-Public Use
  Company Number: HU-NOVOPROD-352244

PATIENT
  Age: 60 Year
  Sex: Female

DRUGS (7)
  1. VICTOZA [Suspect]
     Indication: TYPE 2 DIABETES MELLITUS
     Dosage: 0.6 MG, QD (FOR 2 WEEKS)
     Route: 065
     Dates: start: 20100101, end: 20100101
  2. METFORMIN HYDROCHLORIDE [Concomitant]
     Dosage: 50/1000 MG TWO DAYS BEFORE HOSPITALISATION
  3. VICTOZA [Suspect]
     Dosage: 1.2 MG, QD (FOR 1 WEEK)
     Route: 065
     Dates: start: 20100101
  4. ACCUSITE [Concomitant]
     Dosage: 10/12.5 MG 1X1
  5. TALLITON [Concomitant]
     Dosage: 25 MG, QD
  6. VICTOZA [Suspect]
     Dosage: 1.8 MG, QD
     Route: 065
     Dates: end: 20100805
  7. METFORMIN HCL [Concomitant]
     Dosage: 750 MG, QD

REACTIONS (4)
  - SEPSIS [None]
  - ACUTE ABDOMEN [None]
  - CHOLELITHIASIS [None]
  - COMA [None]
